FAERS Safety Report 17286382 (Version 2)
Quarter: 2020Q1

REPORT INFORMATION
  Report Type: Spontaneous
  Country: AR (occurrence: AR)
  Receive Date: 20200118
  Receipt Date: 20200302
  Transmission Date: 20200409
  Serious: Yes (Other)
  Sender: FDA-Public Use
  Company Number: AR-AMGEN-ARGSP2020006885

PATIENT
  Age: 64 Year
  Sex: Female

DRUGS (2)
  1. ENBREL [Suspect]
     Active Substance: ETANERCEPT
     Indication: RHEUMATOID ARTHRITIS
     Dosage: 50 MILLIGRAM, EVERY 10 DAYS
     Route: 065
     Dates: start: 20091102
  2. ENBREL [Suspect]
     Active Substance: ETANERCEPT
     Dosage: UNK (APPLY IT EARLIER/EVEN IF 10 DAYS HAD NOT PASSED)
     Route: 065

REACTIONS (4)
  - Nodule [Unknown]
  - Off label use [Unknown]
  - Hypothyroidism [Unknown]
  - Pain [Unknown]

NARRATIVE: CASE EVENT DATE: 20091102
